FAERS Safety Report 17659218 (Version 2)
Quarter: 2020Q2

REPORT INFORMATION
  Report Type: Report from Study
  Country: HK (occurrence: HK)
  Receive Date: 20200413
  Receipt Date: 20200420
  Transmission Date: 20200713
  Serious: Yes (Hospitalization)
  Sender: FDA-Public Use
  Company Number: HK-ROCHE-2580085

PATIENT
  Age: 56 Year
  Sex: Female
  Weight: 65 kg

DRUGS (5)
  1. PACLITAXEL. [Suspect]
     Active Substance: PACLITAXEL
     Indication: BREAST CANCER
     Dosage: ON 30/JAN/2020 MOST RECENT DOSE (105 MG) OF PACLITAXEL PRIOR TO AE ONSET AND ON 05/MAR/2020 MOST REC
     Route: 042
     Dates: start: 20191213
  2. EPIRUBICIN [Suspect]
     Active Substance: EPIRUBICIN
     Indication: BREAST CANCER
     Dosage: ON 25/MAR/2020 MOST RECENT DOSE (150 MG) OF EPIRUBICIN PRIOR TO SAE ONSET.
     Route: 042
     Dates: start: 20200312
  3. ATEZOLIZUMAB. [Suspect]
     Active Substance: ATEZOLIZUMAB
     Indication: BREAST CANCER
     Dosage: ON 23/JAN/2020 MOST RECENT DOSE OF ATEZOLIZUMAB PRIOR TO AE ONSET AND ON 12/MAR/2020 MOST RECENT DOS
     Route: 041
     Dates: start: 20191213
  4. FILGRASTIM [Suspect]
     Active Substance: FILGRASTIM
     Indication: BREAST CANCER
     Dosage: TOTAL 8 INJECTIONS WERE INFUSED.
     Route: 042
     Dates: start: 20200314, end: 20200321
  5. CYCLOPHOSPHAMIDE. [Suspect]
     Active Substance: CYCLOPHOSPHAMIDE
     Indication: BREAST CANCER
     Dosage: ON 25/MAR/2020 MOST RECENT DOSE (1000 MG) OF CYCLOPHOSPHAMIDE PRIOR TO SAE ONSET
     Route: 042
     Dates: start: 20200312

REACTIONS (1)
  - Paraesthesia [Not Recovered/Not Resolved]

NARRATIVE: CASE EVENT DATE: 20200325
